FAERS Safety Report 15170299 (Version 1)
Quarter: 2018Q3

REPORT INFORMATION
  Report Type: Spontaneous
  Country: US (occurrence: US)
  Receive Date: 20180720
  Receipt Date: 20180720
  Transmission Date: 20181010
  Serious: Yes (Disabling, Other)
  Sender: FDA-Public Use
  Company Number: US-009507513-1807USA006787

PATIENT
  Age: 33 Year
  Sex: Female

DRUGS (2)
  1. NEXPLANON [Suspect]
     Active Substance: ETONOGESTREL
     Dosage: IMPLANT RIGHT ARM
     Route: 059
     Dates: start: 2018
  2. NEXPLANON [Suspect]
     Active Substance: ETONOGESTREL
     Indication: CONTRACEPTION
     Dosage: 68 MG IMPLANT LEFT ARM
     Route: 059
     Dates: start: 2018, end: 2018

REACTIONS (6)
  - Implant site mass [Not Recovered/Not Resolved]
  - Implant site bruising [Unknown]
  - Paraesthesia [Not Recovered/Not Resolved]
  - Implant site pain [Recovering/Resolving]
  - Device dislocation [Recovered/Resolved]
  - Nerve injury [Not Recovered/Not Resolved]

NARRATIVE: CASE EVENT DATE: 2018
